FAERS Safety Report 8020650-3 (Version None)
Quarter: 2012Q1

REPORT INFORMATION
  Report Type: 
  Country: None (occurrence: None)
  Receive Date: 20120103
  Receipt Date: 20111222
  Transmission Date: 20120608
  Serious: Yes (Hospitalization)
  Sender: FDA-Public Use
  Company Number: JP-ASTRAZENECA-2011SE43372

PATIENT
  Age: 68 Year
  Sex: Female

DRUGS (16)
  1. WARFARIN SODIUM [Concomitant]
     Route: 048
  2. BEZATOL SR [Concomitant]
     Indication: HYPERLIPIDAEMIA
     Route: 048
  3. NOVORAPID [Concomitant]
     Indication: DIABETES MELLITUS
     Route: 058
  4. OMEPRAZOLE [Concomitant]
     Route: 048
  5. ASTOMIN [Concomitant]
     Route: 048
  6. ZETIA [Concomitant]
     Route: 048
  7. DIOVAN [Concomitant]
     Indication: HYPERTENSION
     Route: 048
  8. LASIX [Concomitant]
     Route: 048
  9. ALENDRONATE SODIUM [Concomitant]
     Route: 048
  10. MEROPENEM [Suspect]
     Indication: PYELONEPHRITIS
     Route: 042
     Dates: start: 20110617, end: 20110630
  11. MUCOSOLVAN [Concomitant]
     Route: 048
  12. LENDORMIN D [Concomitant]
     Route: 048
  13. SENNOSIDE [Concomitant]
     Route: 048
  14. PREDNISOLONE [Concomitant]
     Route: 048
  15. LANTUS [Concomitant]
     Indication: DIABETES MELLITUS
     Route: 058
  16. IMURAN [Concomitant]
     Indication: ARTERITIS
     Route: 048

REACTIONS (1)
  - FEBRILE NEUTROPENIA [None]
